FAERS Safety Report 10225078 (Version 1)
Quarter: 2014Q2

REPORT INFORMATION
  Report Type: Spontaneous
  Country: IT (occurrence: IT)
  Receive Date: 20140609
  Receipt Date: 20140609
  Transmission Date: 20141212
  Serious: Yes (Hospitalization)
  Sender: FDA-Public Use
  Company Number: IT-WATSON-2013-25403

PATIENT
  Age: 91 Year
  Sex: Male

DRUGS (3)
  1. LASIX [Suspect]
     Indication: HYPERTENSION
     Dosage: 25 MG, QHS
     Route: 048
  2. ALDACTONE [Suspect]
     Indication: HYPERTENSION
     Dosage: 25 MG, QHS
     Route: 048
  3. RAMIPRIL (UNKNOWN) [Suspect]
     Indication: HYPERTENSION
     Dosage: 5 MG, QHS
     Route: 048

REACTIONS (2)
  - Medication error [Recovering/Resolving]
  - Renal failure acute [Recovering/Resolving]
